FAERS Safety Report 16020650 (Version 2)
Quarter: 2019Q2

REPORT INFORMATION
  Report Type: Report from Study
  Country: US (occurrence: US)
  Receive Date: 20190301
  Receipt Date: 20190416
  Transmission Date: 20190711
  Serious: No
  Sender: FDA-Public Use
  Company Number: US-ROCHE-2275155

PATIENT
  Sex: Female
  Weight: 63.11 kg

DRUGS (1)
  1. OCREVUS [Suspect]
     Active Substance: OCRELIZUMAB
     Indication: RELAPSING-REMITTING MULTIPLE SCLEROSIS
     Dosage: HALF DOSE ;ONGOING: YES
     Route: 065
     Dates: start: 20190201

REACTIONS (3)
  - Nasopharyngitis [Not Recovered/Not Resolved]
  - Dysphemia [Unknown]
  - Dermatitis [Unknown]
